FAERS Safety Report 7378312-1 (Version None)
Quarter: 2011Q1

REPORT INFORMATION
  Report Type: 
  Country: None (occurrence: None)
  Receive Date: 20110328
  Receipt Date: 20110318
  Transmission Date: 20110831
  Serious: Yes (Other)
  Sender: FDA-Public Use
  Company Number: US-JNJFOC-20110206646

PATIENT
  Age: 57 Year
  Sex: Male
  Weight: 99.79 kg

DRUGS (4)
  1. ZOLOFT [Concomitant]
     Indication: DEPRESSION
  2. TWYNSTA [Concomitant]
     Indication: HYPERTENSION
  3. STELARA [Suspect]
     Indication: PSORIASIS
     Route: 058
  4. PRILOSEC [Concomitant]

REACTIONS (4)
  - TRANSIENT ISCHAEMIC ATTACK [None]
  - LETHARGY [None]
  - INCOHERENT [None]
  - AMNESIA [None]
